FAERS Safety Report 4464967-8 (Version None)
Quarter: 2004Q4

REPORT INFORMATION
  Report Type: 
  Country: None (occurrence: None)
  Receive Date: 20041004
  Receipt Date: 20040423
  Transmission Date: 20050328
  Serious: No
  Sender: FDA-Public Use
  Company Number: 368206

PATIENT

DRUGS (2)
  1. COREG [Suspect]
     Route: 048
  2. MAVIK [Concomitant]

REACTIONS (1)
  - FATIGUE [None]
